FAERS Safety Report 6914162-5 (Version None)
Quarter: 2010Q3

REPORT INFORMATION
  Report Type: 
  Country: None (occurrence: None)
  Receive Date: 20100809
  Receipt Date: 20100729
  Transmission Date: 20110219
  Serious: Yes (Hospitalization)
  Sender: FDA-Public Use
  Company Number: US-BAXTER-2010BH020285

PATIENT
  Age: 59 Year
  Sex: Female

DRUGS (7)
  1. GAMMAGARD S/D [Suspect]
     Indication: PRODUCT USED FOR UNKNOWN INDICATION
     Route: 065
  2. GAMMAGARD S/D [Suspect]
     Route: 065
     Dates: start: 20100710, end: 20100710
  3. GAMMAGARD S/D [Suspect]
     Route: 065
     Dates: start: 20100707, end: 20100707
  4. ACCOLATE [Concomitant]
  5. CLARITIN-D [Concomitant]
  6. ZYRTEC [Concomitant]
     Indication: HYPERSENSITIVITY
  7. ADVAIR DISKUS 100/50 [Concomitant]

REACTIONS (9)
  - ASTHENIA [None]
  - ERYTHEMA [None]
  - FATIGUE [None]
  - FEELING ABNORMAL [None]
  - HAEMATOCRIT DECREASED [None]
  - HAEMOGLOBIN DECREASED [None]
  - HEADACHE [None]
  - PRURITUS [None]
  - RASH [None]
